FAERS Safety Report 25881021 (Version 1)
Quarter: 2025Q4

REPORT INFORMATION
  Report Type: Spontaneous
  Country: PE (occurrence: PE)
  Receive Date: 20251004
  Receipt Date: 20251004
  Transmission Date: 20260118
  Serious: Yes (Other)
  Sender: ACCORD
  Company Number: PE-MLMSERVICE-20250908-PI639172-00101-1

PATIENT
  Age: 43 Year
  Sex: Female

DRUGS (2)
  1. CISPLATIN [Suspect]
     Active Substance: CISPLATIN
     Indication: Squamous cell carcinoma of the cervix
     Dosage: WEEKLY CISPLATIN 4 TIMES FINISHING IT
     Dates: start: 202207, end: 2022
  2. CISPLATIN [Suspect]
     Active Substance: CISPLATIN
     Indication: Cervix carcinoma stage IV
     Dosage: WEEKLY CISPLATIN 4 TIMES FINISHING IT
     Dates: start: 202207, end: 2022

REACTIONS (1)
  - Gastrointestinal toxicity [Unknown]

NARRATIVE: CASE EVENT DATE: 20220101
